FAERS Safety Report 10370974 (Version 5)
Quarter: 2015Q3

REPORT INFORMATION
  Report Type: Report from Study
  Country: US (occurrence: US)
  Receive Date: 20140808
  Receipt Date: 20150916
  Transmission Date: 20151125
  Serious: Yes (Hospitalization, Other)
  Sender: FDA-Public Use
  Company Number: US-SA-2014SA105051

PATIENT
  Age: 49 Year
  Sex: Female

DRUGS (3)
  1. AUBAGIO [Suspect]
     Active Substance: TERIFLUNOMIDE
     Indication: MULTIPLE SCLEROSIS
     Route: 048
     Dates: start: 20130416
  2. WELLBUTRIN [Concomitant]
     Active Substance: BUPROPION HYDROCHLORIDE
  3. AUBAGIO [Suspect]
     Active Substance: TERIFLUNOMIDE
     Indication: MULTIPLE SCLEROSIS
     Route: 048
     Dates: start: 20140416

REACTIONS (8)
  - Energy increased [Unknown]
  - Alopecia [Unknown]
  - Feeling of body temperature change [Unknown]
  - Onychomadesis [Recovered/Resolved]
  - Limb injury [Unknown]
  - Restless legs syndrome [Recovering/Resolving]
  - Cholecystectomy [Recovering/Resolving]
  - Onychoclasis [Unknown]

NARRATIVE: CASE EVENT DATE: 201407
